FAERS Safety Report 5124601-0 (Version None)
Quarter: 2006Q4

REPORT INFORMATION
  Report Type: 
  Country: None (occurrence: None)
  Receive Date: 20061011
  Receipt Date: 20061006
  Transmission Date: 20070319
  Serious: Yes (Disabling, Other)
  Sender: FDA-Public Use
  Company Number: US-JNJFOC-20060906494

PATIENT
  Sex: Female
  Weight: 54.89 kg

DRUGS (1)
  1. LEVAQUIN [Suspect]
     Indication: SINUSITIS

REACTIONS (31)
  - ACTIVITIES OF DAILY LIVING IMPAIRED [None]
  - ADJUSTMENT DISORDER [None]
  - ALANINE AMINOTRANSFERASE INCREASED [None]
  - AMYOTROPHY [None]
  - ANXIETY [None]
  - ARTHRALGIA [None]
  - ARTHRITIS [None]
  - BURNING SENSATION [None]
  - COMPLEX REGIONAL PAIN SYNDROME [None]
  - DEPRESSED MOOD [None]
  - EXOSTOSIS [None]
  - FALL [None]
  - GAIT DISTURBANCE [None]
  - INFLAMMATION [None]
  - JOINT EFFUSION [None]
  - MUSCLE ATROPHY [None]
  - MUSCLE CONTRACTIONS INVOLUNTARY [None]
  - MYOSITIS [None]
  - NERVE COMPRESSION [None]
  - OEDEMA [None]
  - PAIN [None]
  - PAIN IN EXTREMITY [None]
  - PERONEAL NERVE PALSY [None]
  - PLANTAR FASCIITIS [None]
  - SINUSITIS [None]
  - SWELLING [None]
  - TENDON DISORDER [None]
  - TENDON INJURY [None]
  - TENDON RUPTURE [None]
  - TENDONITIS [None]
  - TREMOR [None]
